FAERS Safety Report 8358193-X (Version None)
Quarter: 2012Q2

REPORT INFORMATION
  Report Type: 
  Country: None (occurrence: None)
  Receive Date: 20120514
  Receipt Date: 20120504
  Transmission Date: 20120825
  Serious: Yes (Hospitalization, Congenital Anomaly)
  Sender: FDA-Public Use
  Company Number: US-GLAXOSMITHKLINE-A0977191A

PATIENT
  Sex: Male

DRUGS (4)
  1. ATENOLOL [Concomitant]
  2. INSULIN [Concomitant]
  3. PAXIL [Suspect]
     Indication: DEPRESSION
     Dosage: 20MG PER DAY
     Route: 064
  4. MULTI-VITAMINS [Concomitant]

REACTIONS (3)
  - FOETAL EXPOSURE DURING PREGNANCY [None]
  - CYTOGENETIC ABNORMALITY [None]
  - TALIPES [None]
